FAERS Safety Report 9518688 (Version 2)
Quarter: 2013Q3

REPORT INFORMATION
  Report Type: Report from Study
  Country: BD (occurrence: BD)
  Receive Date: 20130912
  Receipt Date: 20130916
  Transmission Date: 20140515
  Serious: Yes (Death, Other)
  Sender: FDA-Public Use
  Company Number: PHHY2013BD100649

PATIENT
  Age: 65 Year
  Sex: Male

DRUGS (3)
  1. ACLASTA [Suspect]
     Indication: OSTEOPOROSIS
     Dosage: ONCE YEARLY
     Route: 042
     Dates: start: 20130405
  2. CALCIUM [Concomitant]
     Dosage: UNK UKN, UNK
     Route: 048
  3. VITAMIN [Concomitant]
     Dosage: UNK UKN, UNK
     Route: 048

REACTIONS (4)
  - Death [Fatal]
  - Osteoporosis [Fatal]
  - Oral infection [Unknown]
  - Hypophagia [Unknown]
